FAERS Safety Report 24614708 (Version 1)
Quarter: 2024Q4

REPORT INFORMATION
  Report Type: Spontaneous
  Country: US (occurrence: US)
  Receive Date: 20241113
  Receipt Date: 20241113
  Transmission Date: 20250115
  Serious: Yes (Other)
  Sender: ALCON
  Company Number: US-ALCON LABORATORIES-ALC2024US004961

PATIENT
  Age: 81 Year
  Sex: Female

DRUGS (2)
  1. MOXIFLOXACIN [Suspect]
     Active Substance: MOXIFLOXACIN
     Indication: Corneal abrasion
     Dosage: TWICE DAILY
     Route: 047
  2. PROPARACAINE HYDROCHLORIDE [Suspect]
     Active Substance: PROPARACAINE HYDROCHLORIDE
     Indication: Corneal abrasion
     Dosage: TWICE DAILY
     Route: 047

REACTIONS (2)
  - Persistent corneal epithelial defect [Recovering/Resolving]
  - Ulcerative keratitis [Recovering/Resolving]
